FAERS Safety Report 5582864-1 (Version None)
Quarter: 2008Q1

REPORT INFORMATION
  Report Type: 
  Country: None (occurrence: None)
  Receive Date: 20080107
  Receipt Date: 20071228
  Transmission Date: 20080703
  Serious: Yes (Other)
  Sender: FDA-Public Use
  Company Number: US-ROCHE-535692

PATIENT
  Age: 51 Year
  Sex: Female
  Weight: 112.5 kg

DRUGS (1)
  1. TAMIFLU [Suspect]
     Indication: INFLUENZA
     Dosage: REPORTED AS TAMILFU 75 MG, 1 PO BID FOR 5 DAYS.
     Route: 048
     Dates: start: 20071204, end: 20071206

REACTIONS (5)
  - ABDOMINAL PAIN [None]
  - ABDOMINAL PAIN UPPER [None]
  - DIARRHOEA [None]
  - HAEMATEMESIS [None]
  - VOMITING [None]
